FAERS Safety Report 8009210-8 (Version None)
Quarter: 2011Q4

REPORT INFORMATION
  Report Type: 
  Country: None (occurrence: None)
  Receive Date: 20111221
  Receipt Date: 20111208
  Transmission Date: 20120403
  Serious: Yes (Death)
  Sender: FDA-Public Use
  Company Number: 1000024305

PATIENT
  Age: 89 Year
  Sex: Male

DRUGS (4)
  1. LASIX [Concomitant]
  2. URIEF (SILODOSIN) (SILODOSIN) [Concomitant]
  3. MEMANTINE HYDROCHLORIDE [Suspect]
     Indication: DEMENTIA
     Dosage: 5 MG (5 MG,1 IN 1 D),ORAL
     Route: 048
     Dates: start: 20110722, end: 20110729
  4. HARNAL D (TAMSULOSIN HYDROCHLORIDE) (TAMSULOSIN HYDROCHLORIDE) [Concomitant]

REACTIONS (19)
  - PROTHROMBIN TIME PROLONGED [None]
  - ASCITES [None]
  - RESPIRATORY ARREST [None]
  - BLOOD UREA INCREASED [None]
  - BLOOD PRESSURE INCREASED [None]
  - SEDATION [None]
  - ACUTE HEPATIC FAILURE [None]
  - DECREASED ACTIVITY [None]
  - MALNUTRITION [None]
  - BLOOD PRESSURE DECREASED [None]
  - DEPRESSED LEVEL OF CONSCIOUSNESS [None]
  - OEDEMA [None]
  - EATING DISORDER [None]
  - BODY TEMPERATURE DECREASED [None]
  - HYPOGLYCAEMIA [None]
  - DIZZINESS [None]
  - PLEURAL EFFUSION [None]
  - GENERAL PHYSICAL HEALTH DETERIORATION [None]
  - HYDROTHORAX [None]
